FAERS Safety Report 5117011-3 (Version None)
Quarter: 2006Q3

REPORT INFORMATION
  Report Type: 
  Country: None (occurrence: None)
  Receive Date: 20060920
  Receipt Date: 20060906
  Transmission Date: 20061208
  Serious: Yes (Hospitalization, Other)
  Sender: FDA-Public Use
  Company Number: 2006BH007776

PATIENT
  Age: 28 Year
  Sex: Male
  Weight: 74.8 kg

DRUGS (2)
  1. ADVATE (OCTOCOG ALFA) [Suspect]
     Indication: HAEMORRHAGE
     Dosage: AS NEEDED
     Dates: start: 20050815, end: 20060224
  2. ADVATE (OCTOCOG ALFA) [Suspect]

REACTIONS (3)
  - FACTOR VIII INHIBITION [None]
  - HAEMARTHROSIS [None]
  - HAEMORRHAGE [None]
